FAERS Safety Report 18158092 (Version 1)
Quarter: 2020Q3

REPORT INFORMATION
  Report Type: Spontaneous
  Country: JP (occurrence: JP)
  Receive Date: 20200817
  Receipt Date: 20200817
  Transmission Date: 20201103
  Serious: Yes (Hospitalization)
  Sender: FDA-Public Use
  Company Number: JP-BEXIMCO-2020BEX00037

PATIENT
  Age: 18 Year
  Sex: Female

DRUGS (6)
  1. UNSPECIFIED SUPPLEMENTS [Concomitant]
     Indication: SUICIDE ATTEMPT
     Route: 065
  2. ATORVASTATIN [Concomitant]
     Active Substance: ATORVASTATIN
     Indication: SUICIDE ATTEMPT
     Dosage: 1 TABLETS
     Route: 065
  3. VILDAGLIPTIN [Suspect]
     Active Substance: VILDAGLIPTIN
     Indication: SUICIDE ATTEMPT
     Dosage: 26 TABLETS
     Route: 065
  4. METFORMIN HYDROCHLORIDE. [Suspect]
     Active Substance: METFORMIN HYDROCHLORIDE
     Indication: SUICIDE ATTEMPT
     Dosage: 64 TABLETS
     Route: 065
  5. DAPAGLIFLOZIN. [Concomitant]
     Active Substance: DAPAGLIFLOZIN
     Indication: SUICIDE ATTEMPT
     Dosage: 5 TABLETS
     Route: 065
  6. GLIMEPIRIDE. [Concomitant]
     Active Substance: GLIMEPIRIDE
     Indication: SUICIDE ATTEMPT
     Dosage: 7 TABLETS
     Route: 065

REACTIONS (9)
  - Disseminated intravascular coagulation [Unknown]
  - Lactic acidosis [Unknown]
  - Shock [Recovered/Resolved]
  - Capillary leak syndrome [Recovered/Resolved]
  - Acute kidney injury [Unknown]
  - Overdose [Recovered/Resolved]
  - Loss of consciousness [Recovered/Resolved]
  - Compartment syndrome [Recovered/Resolved]
  - Pneumonia aspiration [Unknown]
